FAERS Safety Report 9270208 (Version 3)
Quarter: 2013Q2

REPORT INFORMATION
  Report Type: Report from Study
  Country: CA (occurrence: CA)
  Receive Date: 20130503
  Receipt Date: 20130607
  Transmission Date: 20140414
  Serious: Yes (Other)
  Sender: FDA-Public Use
  Company Number: CA-ABBOTT-13P-028-1082159-00

PATIENT
  Age: 61 Year
  Sex: Female
  Weight: 71.3 kg

DRUGS (10)
  1. HUMIRA [Suspect]
     Indication: SERONEGATIVE ARTHRITIS
     Route: 058
     Dates: start: 20100115, end: 20130220
  2. HUMIRA [Suspect]
     Route: 058
     Dates: start: 201303, end: 201304
  3. METHOTREXATE [Concomitant]
     Indication: ARTHRITIS
     Route: 048
     Dates: start: 201303, end: 201304
  4. METHOTREXATE [Concomitant]
     Route: 058
     Dates: end: 20130220
  5. VITAMIN D [Concomitant]
     Indication: VITAMIN SUPPLEMENTATION
     Dosage: DIE
     Route: 048
  6. FOLIC ACID [Concomitant]
     Indication: VITAMIN SUPPLEMENTATION
     Dosage: DIE
     Route: 048
  7. NEXIUM [Concomitant]
     Indication: GASTROOESOPHAGEAL REFLUX DISEASE
     Dosage: DIE
     Route: 048
  8. TYLENOL [Concomitant]
     Indication: HEADACHE
     Dosage: 2 X 500 MG
     Route: 048
  9. ESTROGEL [Concomitant]
     Indication: PRODUCT USED FOR UNKNOWN INDICATION
  10. FLOVENT [Concomitant]
     Indication: PRODUCT USED FOR UNKNOWN INDICATION
     Dosage: 1 INHALATION BID PRN
     Route: 055

REACTIONS (17)
  - Synovial cyst [Unknown]
  - Breast discharge [Unknown]
  - Invasive ductal breast carcinoma [Unknown]
  - Breast pain [Unknown]
  - Galactostasis [Unknown]
  - Breast calcifications [Unknown]
  - Malaise [Unknown]
  - Dizziness [Unknown]
  - Migraine [Unknown]
  - Cyst [Unknown]
  - Weight decreased [Recovered/Resolved]
  - Herpes zoster [Unknown]
  - Vomiting [Not Recovered/Not Resolved]
  - Genital herpes [Recovered/Resolved]
  - Nausea [Recovered/Resolved]
  - Bronchitis [Recovering/Resolving]
  - Sinusitis [Not Recovered/Not Resolved]
